FAERS Safety Report 4422097-5 (Version None)
Quarter: 2004Q3

REPORT INFORMATION
  Report Type: 
  Country: None (occurrence: None)
  Receive Date: 20040802
  Receipt Date: 20040715
  Transmission Date: 20050211
  Serious: No
  Sender: FDA-Public Use
  Company Number: 601399

PATIENT
  Age: 75 Year
  Sex: Male
  Weight: 77.1115 kg

DRUGS (2)
  1. HEMASEEL APR KIT [Suspect]
     Indication: FACE LIFT
     Dosage: 2 CC; ONCE/ CUTANEOUS
     Route: 003
     Dates: start: 20030919, end: 20030919
  2. LIPITOR [Concomitant]

REACTIONS (7)
  - INDURATION [None]
  - KLEBSIELLA INFECTION [None]
  - NEOPLASM SKIN [None]
  - PHARMACEUTICAL PRODUCT COMPLAINT [None]
  - POST PROCEDURAL COMPLICATION [None]
  - SKIN DISORDER [None]
  - WOUND INFECTION [None]
